FAERS Safety Report 9772327 (Version 3)
Quarter: 2014Q1

REPORT INFORMATION
  Report Type: Spontaneous
  Country: US (occurrence: US)
  Receive Date: 20131219
  Receipt Date: 20140127
  Transmission Date: 20141002
  Serious: No
  Sender: FDA-Public Use
  Company Number: US-009507513-1202USA00556

PATIENT
  Sex: Male

DRUGS (1)
  1. PROPECIA [Suspect]
     Indication: ALOPECIA
     Dosage: 1 MG, UNK
     Route: 048
     Dates: start: 20051008

REACTIONS (9)
  - Amnesia [Unknown]
  - Anxiety [Unknown]
  - Cognitive disorder [Not Recovered/Not Resolved]
  - Sexual dysfunction [Not Recovered/Not Resolved]
  - Libido decreased [Unknown]
  - Testicular pain [Unknown]
  - Semen volume decreased [Unknown]
  - Lipoma [Unknown]
  - Sleep apnoea syndrome [Unknown]
